FAERS Safety Report 9306991 (Version 1)
Quarter: 2013Q2

REPORT INFORMATION
  Report Type: Spontaneous
  Country: US (occurrence: US)
  Receive Date: 20130523
  Receipt Date: 20130523
  Transmission Date: 20140414
  Serious: No
  Sender: FDA-Public Use
  Company Number: US-009507513-1305USA005530

PATIENT
  Sex: Male

DRUGS (4)
  1. JANUVIA [Suspect]
     Route: 048
  2. LEVEMIR [Suspect]
  3. PROTAPHANE FLEXPEN [Suspect]
  4. GLIPIZIDE [Suspect]

REACTIONS (1)
  - Blood glucose increased [Unknown]
